FAERS Safety Report 11830705 (Version 2)
Quarter: 2016Q3

REPORT INFORMATION
  Report Type: Spontaneous
  Country: US (occurrence: US)
  Receive Date: 20151214
  Receipt Date: 20160830
  Transmission Date: 20161109
  Serious: No
  Sender: FDA-Public Use
  Company Number: US-APOTEX-2015AP013769

PATIENT

DRUGS (1)
  1. FENTANYL TRANSDERMAL SYSTEM [Suspect]
     Active Substance: FENTANYL
     Indication: PRODUCT USED FOR UNKNOWN INDICATION
     Dosage: 1 PATCH EVERY 48 HOURS
     Route: 065

REACTIONS (8)
  - Insomnia [Unknown]
  - Malaise [Unknown]
  - Restlessness [Unknown]
  - Pain [Unknown]
  - Anxiety [Unknown]
  - Product adhesion issue [Unknown]
  - Drug ineffective [Unknown]
  - Decreased appetite [Unknown]
